FAERS Safety Report 25048873 (Version 2)
Quarter: 2025Q2

REPORT INFORMATION
  Report Type: Spontaneous
  Country: CM (occurrence: CM)
  Receive Date: 20250307
  Receipt Date: 20250526
  Transmission Date: 20250716
  Serious: Yes (Hospitalization, Other)
  Sender: NOVITIUM PHARMA
  Company Number: CM-NOVITIUMPHARMA-2025CMNVP00540

PATIENT
  Age: 29 Year
  Sex: Male

DRUGS (4)
  1. DEXAMETHASONE [Suspect]
     Active Substance: DEXAMETHASONE
     Indication: Skin ulcer
  2. DICLOFENAC [Concomitant]
     Active Substance: DICLOFENAC
  3. OMEPRAZOLE [Concomitant]
     Active Substance: OMEPRAZOLE
     Indication: Product used for unknown indication
  4. TRANEXAMIC ACID [Concomitant]
     Active Substance: TRANEXAMIC ACID
     Indication: Product used for unknown indication

REACTIONS (4)
  - Acute kidney injury [Unknown]
  - Upper gastrointestinal haemorrhage [Recovering/Resolving]
  - Intentional product misuse [Unknown]
  - Duodenal ulcer perforation [Recovering/Resolving]
